FAERS Safety Report 5073416-0 (Version None)
Quarter: 2006Q3

REPORT INFORMATION
  Report Type: 
  Country: None (occurrence: None)
  Receive Date: 20060808
  Receipt Date: 20060714
  Transmission Date: 20061208
  Serious: Yes (Other)
  Sender: FDA-Public Use
  Company Number: PHBS2006BR10768

PATIENT
  Age: 36 Year
  Sex: Female
  Weight: 57 kg

DRUGS (4)
  1. TOFRANIL [Suspect]
     Indication: DEPRESSION
     Dosage: 10 MG, TID
     Route: 048
     Dates: start: 20060607, end: 20060727
  2. OXCARBAZEPINE [Concomitant]
     Dosage: 200 MG/D
     Route: 048
     Dates: start: 20060401
  3. URBANYL [Concomitant]
     Indication: ANXIETY
     Dosage: 20 MG, QHS
     Route: 048
     Dates: start: 20051001
  4. CARBAMAZEPINE [Concomitant]
     Dosage: 200 MG, BID

REACTIONS (5)
  - AGITATION [None]
  - ANXIETY [None]
  - DELIRIUM [None]
  - INSOMNIA [None]
  - SLEEP DISORDER [None]
